FAERS Safety Report 15713246 (Version 1)
Quarter: 2018Q4

REPORT INFORMATION
  Report Type: Spontaneous
  Country: US (occurrence: US)
  Receive Date: 20181212
  Receipt Date: 20181212
  Transmission Date: 20190205
  Serious: No
  Sender: FDA-Public Use
  Company Number: US-ENDO PHARMACEUTICALS INC-2018-036024

PATIENT
  Age: 54 Year
  Sex: Male

DRUGS (2)
  1. TESTIM [Suspect]
     Active Substance: TESTOSTERONE
     Dosage: UNK MG, UNKNOWN
     Route: 061
  2. TESTIM [Suspect]
     Active Substance: TESTOSTERONE
     Indication: HYPOGONADISM
     Dosage: UNK MG, UNKNOWN
     Route: 061
     Dates: end: 201804

REACTIONS (4)
  - Asthenia [Recovered/Resolved]
  - Product dispensing error [Recovered/Resolved]
  - Product odour abnormal [Recovered/Resolved]
  - Application site rash [Recovered/Resolved]

NARRATIVE: CASE EVENT DATE: 201804
